FAERS Safety Report 9476636 (Version 1)
Quarter: 2013Q3

REPORT INFORMATION
  Report Type: Spontaneous
  Country: US (occurrence: US)
  Receive Date: 20130826
  Receipt Date: 20130826
  Transmission Date: 20140515
  Serious: Yes (Other)
  Sender: FDA-Public Use
  Company Number: PHHY2013US090130

PATIENT
  Sex: Male

DRUGS (4)
  1. DEXAMETHASONE [Suspect]
     Route: 064
  2. HYDROCORTISONE [Suspect]
     Dosage: MATERNAL DOSE: 50 MG Q6H
     Route: 064
  3. IMMUNOGLOBULIN [Suspect]
  4. ROMIPLOSTIM [Suspect]

REACTIONS (3)
  - Premature baby [Unknown]
  - Adrenal insufficiency [Recovered/Resolved]
  - Foetal exposure during pregnancy [Unknown]
